FAERS Safety Report 23752498 (Version 1)
Quarter: 2024Q2

REPORT INFORMATION
  Report Type: Spontaneous
  Country: US (occurrence: US)
  Receive Date: 20240417
  Receipt Date: 20240417
  Transmission Date: 20240716
  Serious: No
  Sender: FDA-Public Use
  Company Number: US-ELI_LILLY_AND_COMPANY-US202404009606

PATIENT
  Age: 67 Year
  Sex: Male

DRUGS (4)
  1. MOUNJARO [Suspect]
     Active Substance: TIRZEPATIDE
     Indication: Illness
     Dosage: 2.5 MG, WEEKLY (1/W)
     Route: 065
     Dates: start: 20240408
  2. MOUNJARO [Suspect]
     Active Substance: TIRZEPATIDE
     Indication: Illness
     Dosage: 2.5 MG, WEEKLY (1/W)
     Route: 065
     Dates: start: 20240408
  3. MOUNJARO [Suspect]
     Active Substance: TIRZEPATIDE
     Indication: Illness
     Dosage: 2.5 MG, WEEKLY (1/W)
     Route: 065
     Dates: start: 20240408
  4. MOUNJARO [Suspect]
     Active Substance: TIRZEPATIDE
     Indication: Illness
     Dosage: 2.5 MG, WEEKLY (1/W)
     Route: 065
     Dates: start: 20240408

REACTIONS (5)
  - Off label use [Unknown]
  - Decreased appetite [Unknown]
  - Vomiting [Unknown]
  - Diarrhoea [Unknown]
  - Nausea [Unknown]

NARRATIVE: CASE EVENT DATE: 20240408
